FAERS Safety Report 7056290-2 (Version None)
Quarter: 2010Q4

REPORT INFORMATION
  Report Type: 
  Country: None (occurrence: None)
  Receive Date: 20101018
  Receipt Date: 20101011
  Transmission Date: 20110411
  Serious: Yes (Other)
  Sender: FDA-Public Use
  Company Number: IMP_05110_2010

PATIENT
  Age: 38 Year
  Sex: Female

DRUGS (4)
  1. BUPROPION HCL [Suspect]
     Indication: DEPRESSION
     Dosage: (300 MG)
  2. VENLAFAXINE HCL [Suspect]
     Indication: DEPRESSION
     Dosage: (300 MG)  ; (375 MG) ; (225 MG)
  3. LITHIUM [Concomitant]
  4. PREGABALIN [Concomitant]

REACTIONS (5)
  - AGITATION [None]
  - DRUG INTERACTION [None]
  - HEADACHE [None]
  - INSOMNIA [None]
  - TENSION [None]
